FAERS Safety Report 9536786 (Version 2)
Quarter: 2013Q3

REPORT INFORMATION
  Report Type: Report from Study
  Country: DE (occurrence: DE)
  Receive Date: 20130919
  Receipt Date: 20130919
  Transmission Date: 20140515
  Serious: Yes (Hospitalization, Other)
  Sender: FDA-Public Use
  Company Number: DE-ABBVIE-13P-062-1068427-00

PATIENT
  Age: 41 Year
  Sex: Female
  Weight: 77 kg

DRUGS (4)
  1. HUMIRA [Suspect]
     Indication: CROHN^S DISEASE
     Route: 058
     Dates: start: 20121105, end: 20130114
  2. HUMIRA [Suspect]
  3. AZATHIOPRINE [Concomitant]
     Indication: PRODUCT USED FOR UNKNOWN INDICATION
     Dates: start: 20120505
  4. ASPIRINE [Concomitant]
     Indication: TAKAYASU^S ARTERITIS

REACTIONS (4)
  - Anal fistula [Recovered/Resolved]
  - Anal abscess [Recovered/Resolved]
  - Anal fistula [Recovered/Resolved]
  - Anal fistula [Recovered/Resolved]
